FAERS Safety Report 8055326-X (Version None)
Quarter: 2012Q1

REPORT INFORMATION
  Report Type: 
  Country: None (occurrence: None)
  Receive Date: 20120119
  Receipt Date: 20120109
  Transmission Date: 20120608
  Serious: Yes (Hospitalization)
  Sender: FDA-Public Use
  Company Number: US-BAYER-2011-077234

PATIENT
  Age: 26 Year
  Sex: Female
  Weight: 77 kg

DRUGS (4)
  1. PREDNISONE [Concomitant]
     Dosage: UNK
     Dates: start: 20090811
  2. VICODIN [Concomitant]
     Dosage: UNK
     Dates: start: 20090823
  3. YAZ [Suspect]
     Indication: CONTRACEPTION
     Dosage: UNK
     Dates: start: 20080201, end: 20090823
  4. MOTRIN [Concomitant]

REACTIONS (2)
  - AMNESIA [None]
  - CEREBRAL VENOUS THROMBOSIS [None]
